FAERS Safety Report 19233618 (Version 9)
Quarter: 2022Q1

REPORT INFORMATION
  Report Type: Report from Study
  Country: US (occurrence: US)
  Receive Date: 20210507
  Receipt Date: 20220314
  Transmission Date: 20220424
  Serious: Yes (Hospitalization)
  Sender: FDA-Public Use
  Company Number: NVSC2021US102601

PATIENT
  Age: 60 Year
  Sex: Male

DRUGS (2)
  1. COSENTYX [Suspect]
     Active Substance: SECUKINUMAB
     Indication: Psoriasis
     Dosage: 300 MG, QMO(Q 5 WEEKS AND Q 4 WEEKS)
     Route: 058
     Dates: start: 20210208
  2. COSENTYX [Suspect]
     Active Substance: SECUKINUMAB
     Indication: Psoriasis

REACTIONS (6)
  - Cellulitis [Recovered/Resolved]
  - Hypersensitivity [Unknown]
  - Infection [Unknown]
  - Psoriasis [Recovering/Resolving]
  - Arthritis [Unknown]
  - Arthralgia [Unknown]

NARRATIVE: CASE EVENT DATE: 20210505
